FAERS Safety Report 11264048 (Version 1)
Quarter: 2015Q3

REPORT INFORMATION
  Report Type: Spontaneous
  Country: US (occurrence: US)
  Receive Date: 20150713
  Receipt Date: 20150713
  Transmission Date: 20151125
  Serious: Yes (Hospitalization)
  Sender: FDA-Public Use
  Company Number: US-JNJFOC-20150607865

PATIENT
  Age: 11 Year
  Sex: Male

DRUGS (3)
  1. RISPERIDONE. [Suspect]
     Active Substance: RISPERIDONE
     Indication: ENCEPHALITIS AUTOIMMUNE
     Route: 065
  2. RISPERIDONE. [Suspect]
     Active Substance: RISPERIDONE
     Indication: ENCEPHALITIS AUTOIMMUNE
     Dosage: 1 MG AT BED TIME AND 0.5 MG AT NIGHT
     Route: 065
  3. RISPERIDONE. [Suspect]
     Active Substance: RISPERIDONE
     Indication: ENCEPHALITIS AUTOIMMUNE
     Route: 065

REACTIONS (3)
  - Off label use [Unknown]
  - Neuroleptic malignant syndrome [Unknown]
  - Drug ineffective for unapproved indication [Unknown]
